FAERS Safety Report 9819860 (Version 1)
Quarter: 2013Q4

REPORT INFORMATION
  Report Type: Spontaneous
  Country: US (occurrence: None)
  Receive Date: 20131223
  Receipt Date: 20131223
  Transmission Date: 20140711
  Serious: No
  Sender: FDA-Public Use
  Company Number: 219385

PATIENT
  Sex: Male

DRUGS (7)
  1. PICATO (0.05 %, GEL) [Suspect]
     Indication: DRY SKIN
     Route: 061
     Dates: start: 20121017, end: 20121018
  2. PANTOPRAZOLE (PANTOPRAZOLE) [Concomitant]
  3. ALPRAZOLAM (ALPRAZOLAM) [Concomitant]
  4. METOPROLOL (METOPROLOL) [Concomitant]
  5. ASPIRIN (ACETYLSALICYLIC ACID) [Concomitant]
  6. MULTIVITAMIN (MULTIVIT) [Concomitant]
  7. FISH OIL (FISH OIL) [Concomitant]

REACTIONS (8)
  - Application site erythema [None]
  - Application site irritation [None]
  - Skin disorder [None]
  - Application site scab [None]
  - Skin exfoliation [None]
  - Application site exfoliation [None]
  - Erythema [None]
  - Skin irritation [None]
